FAERS Safety Report 6543282-2 (Version None)
Quarter: 2010Q1

REPORT INFORMATION
  Report Type: 
  Country: None (occurrence: None)
  Receive Date: 20100120
  Receipt Date: 20100113
  Transmission Date: 20100710
  Serious: Yes (Other)
  Sender: FDA-Public Use
  Company Number: BR-BAYER-200914824LA

PATIENT
  Sex: Female

DRUGS (1)
  1. YASMIN [Suspect]
     Indication: CONTRACEPTION
     Dosage: 6 DAYS OF INTERVAL BETWEEN PACKAGES
     Route: 048
     Dates: start: 19990101, end: 20090320

REACTIONS (3)
  - ANTEPARTUM HAEMORRHAGE [None]
  - METRORRHAGIA [None]
  - PREGNANCY ON ORAL CONTRACEPTIVE [None]
